FAERS Safety Report 17750600 (Version 2)
Quarter: 2020Q2

REPORT INFORMATION
  Report Type: Report from Study
  Country: GB (occurrence: GB)
  Receive Date: 20200506
  Receipt Date: 20200613
  Transmission Date: 20200714
  Serious: Yes (Other)
  Sender: FDA-Public Use
  Company Number: NVSC2020GB122794

PATIENT
  Sex: Male

DRUGS (4)
  1. DOTREX [Concomitant]
     Indication: PRODUCT USED FOR UNKNOWN INDICATION
     Dosage: UNK
     Route: 065
  2. ETORICOXIB. [Concomitant]
     Active Substance: ETORICOXIB
     Indication: PRODUCT USED FOR UNKNOWN INDICATION
     Dosage: UNK
     Route: 065
  3. COSENTYX [Suspect]
     Active Substance: SECUKINUMAB
     Indication: ANKYLOSING SPONDYLITIS
     Dosage: 150 MG, OT (ON WEEKS 0, 1, 2, 3 AND 4 FOLLOWED BY ONCE MONTHLY)
     Route: 058
  4. COCODAMOL [Concomitant]
     Active Substance: ACETAMINOPHEN\CODEINE PHOSPHATE
     Indication: PRODUCT USED FOR UNKNOWN INDICATION
     Dosage: UNK
     Route: 065

REACTIONS (3)
  - Lower respiratory tract infection [Unknown]
  - Nasopharyngitis [Unknown]
  - Dyspnoea [Unknown]
